FAERS Safety Report 24562804 (Version 1)
Quarter: 2024Q4

REPORT INFORMATION
  Report Type: Report from Study
  Country: CA (occurrence: CA)
  Receive Date: 20241029
  Receipt Date: 20241029
  Transmission Date: 20250115
  Serious: Yes (Other)
  Sender: JOHNSON AND JOHNSON
  Company Number: CA-JNJFOC-20241066696

PATIENT
  Sex: Female

DRUGS (2)
  1. REMICADE [Suspect]
     Active Substance: INFLIXIMAB
     Indication: Crohn^s disease
     Route: 041
  2. PREDNISONE [Suspect]
     Active Substance: PREDNISONE
     Indication: Bronchitis
     Route: 065

REACTIONS (5)
  - Crohn^s disease [Unknown]
  - Bronchitis [Recovering/Resolving]
  - Oral fungal infection [Recovering/Resolving]
  - Vulvovaginal mycotic infection [Recovering/Resolving]
  - Nasopharyngitis [Recovering/Resolving]
